FAERS Safety Report 7291850-5 (Version None)
Quarter: 2011Q1

REPORT INFORMATION
  Report Type: 
  Country: None (occurrence: None)
  Receive Date: 20110214
  Receipt Date: 20110201
  Transmission Date: 20110831
  Serious: Yes (Hospitalization, Other)
  Sender: FDA-Public Use
  Company Number: AU-ROCHE-757874

PATIENT
  Age: 65 Year
  Sex: Male

DRUGS (6)
  1. VITAMIN B [Concomitant]
  2. FISH OIL [Concomitant]
  3. LIPITOR [Concomitant]
  4. BEVACIZUMAB [Suspect]
     Indication: COLORECTAL CANCER STAGE IV
     Route: 065
  5. CAPECITABINE [Suspect]
     Indication: COLORECTAL CANCER STAGE IV
     Route: 065
  6. ZINC [Concomitant]

REACTIONS (2)
  - NEOPLASM MALIGNANT [None]
  - UNEVALUABLE INVESTIGATION [None]
